FAERS Safety Report 5500511-1 (Version None)
Quarter: 2007Q4

REPORT INFORMATION
  Report Type: 
  Country: None (occurrence: None)
  Receive Date: 20071018
  Receipt Date: 20070329
  Transmission Date: 20080405
  Serious: Yes (Other)
  Sender: FDA-Public Use
  Company Number: 2006130250

PATIENT
  Age: 32 Year
  Sex: Female

DRUGS (4)
  1. NEURONTIN [Suspect]
     Indication: BIPOLAR DISORDER
     Dates: start: 20030702
  2. LIPITOR [Concomitant]
  3. WELLBUTRIN [Concomitant]
  4. AYGESTIN [Concomitant]

REACTIONS (1)
  - SUICIDE ATTEMPT [None]
